FAERS Safety Report 26125400 (Version 1)
Quarter: 2025Q4

REPORT INFORMATION
  Report Type: Spontaneous
  Country: BR (occurrence: BR)
  Receive Date: 20251205
  Receipt Date: 20251205
  Transmission Date: 20260118
  Serious: Yes (Death, Life-Threatening, Other)
  Sender: MUNDIPHARMA EDO
  Company Number: BR-NAPPMUNDI-GBR-2025-0130999

PATIENT
  Age: 59 Year
  Sex: Male

DRUGS (1)
  1. REZZAYO [Suspect]
     Active Substance: REZAFUNGIN
     Indication: Candida infection
     Dosage: FIRST DOSE 400 MG, THEN 200 MG ON D8

REACTIONS (1)
  - Bacterial infection [Fatal]

NARRATIVE: CASE EVENT DATE: 20251031
